FAERS Safety Report 9854006 (Version 1)
Quarter: 2014Q1

REPORT INFORMATION
  Report Type: Spontaneous
  Country: SG (occurrence: SG)
  Receive Date: 20140129
  Receipt Date: 20140129
  Transmission Date: 20141002
  Serious: Yes (Other)
  Sender: FDA-Public Use
  Company Number: SG-BAXTER-2014BAX003873

PATIENT
  Sex: 0

DRUGS (3)
  1. HOLOXAN FOR INJECTION 1G/25ML [Suspect]
     Indication: PRODUCT USED FOR UNKNOWN INDICATION
     Route: 065
  2. UROMITEXAN MULTIDOSE FOR I.V. INJECTION 100MG.ML [Suspect]
     Indication: PRODUCT USED FOR UNKNOWN INDICATION
     Route: 065
  3. POTASSIUM CHLORIDE IN 5% DEXTROSE AND SODIUM CHLORIDE INJECTION, [Suspect]
     Indication: PRODUCT USED FOR UNKNOWN INDICATION
     Dosage: ; 10NMOL AT RATE 216ML/HR W/ VOLUME AT 1000ML
     Route: 065

REACTIONS (5)
  - Discomfort [Recovered/Resolved]
  - Chills [Recovered/Resolved]
  - Cough [Recovered/Resolved]
  - Dyspnoea [Recovered/Resolved]
  - Device infusion issue [Unknown]
